FAERS Safety Report 25859035 (Version 1)
Quarter: 2025Q3

REPORT INFORMATION
  Report Type: Spontaneous
  Country: GB (occurrence: GB)
  Receive Date: 20250929
  Receipt Date: 20250929
  Transmission Date: 20251021
  Serious: Yes (Other)
  Sender: MYLAN
  Company Number: GB-MHRA-TPP3675331C4093150YC1758204699376

PATIENT
  Age: 41 Year
  Sex: Female
  Weight: 59 kg

DRUGS (32)
  1. DOXYCYCLINE [Suspect]
     Active Substance: DOXYCYCLINE
     Indication: Bronchitis
  2. DOXYCYCLINE [Suspect]
     Active Substance: DOXYCYCLINE
     Route: 065
  3. DOXYCYCLINE [Suspect]
     Active Substance: DOXYCYCLINE
     Route: 065
  4. DOXYCYCLINE [Suspect]
     Active Substance: DOXYCYCLINE
  5. BETAMETHASONE VALERATE [Concomitant]
     Active Substance: BETAMETHASONE VALERATE
     Indication: Ill-defined disorder
     Dosage: UNK UNK, BID (APPLY TWICE DAILY FOR UPTO TEN DAYS TO ECZEMA)
     Dates: start: 20240517
  6. BETAMETHASONE VALERATE [Concomitant]
     Active Substance: BETAMETHASONE VALERATE
     Dosage: UNK UNK, BID (APPLY TWICE DAILY FOR UPTO TEN DAYS TO ECZEMA)
     Route: 065
     Dates: start: 20240517
  7. BETAMETHASONE VALERATE [Concomitant]
     Active Substance: BETAMETHASONE VALERATE
     Dosage: UNK UNK, BID (APPLY TWICE DAILY FOR UPTO TEN DAYS TO ECZEMA)
     Route: 065
     Dates: start: 20240517
  8. BETAMETHASONE VALERATE [Concomitant]
     Active Substance: BETAMETHASONE VALERATE
     Dosage: UNK UNK, BID (APPLY TWICE DAILY FOR UPTO TEN DAYS TO ECZEMA)
     Dates: start: 20240517
  9. DYMISTA [Concomitant]
     Active Substance: AZELASTINE HYDROCHLORIDE\FLUTICASONE PROPIONATE
     Indication: Ill-defined disorder
  10. DYMISTA [Concomitant]
     Active Substance: AZELASTINE HYDROCHLORIDE\FLUTICASONE PROPIONATE
     Route: 065
  11. DYMISTA [Concomitant]
     Active Substance: AZELASTINE HYDROCHLORIDE\FLUTICASONE PROPIONATE
     Route: 065
  12. DYMISTA [Concomitant]
     Active Substance: AZELASTINE HYDROCHLORIDE\FLUTICASONE PROPIONATE
  13. MINERAL OIL\PARAFFIN [Concomitant]
     Active Substance: MINERAL OIL\PARAFFIN
     Indication: Ill-defined disorder
  14. MINERAL OIL\PARAFFIN [Concomitant]
     Active Substance: MINERAL OIL\PARAFFIN
     Route: 065
  15. MINERAL OIL\PARAFFIN [Concomitant]
     Active Substance: MINERAL OIL\PARAFFIN
     Route: 065
  16. MINERAL OIL\PARAFFIN [Concomitant]
     Active Substance: MINERAL OIL\PARAFFIN
  17. FEXOFENADINE [Concomitant]
     Active Substance: FEXOFENADINE HYDROCHLORIDE
     Indication: Ill-defined disorder
     Dosage: 1 DOSAGE FORM, QD (TAKE ONE TABLET ONCE A DAY)
     Dates: start: 20240517
  18. FEXOFENADINE [Concomitant]
     Active Substance: FEXOFENADINE HYDROCHLORIDE
     Dosage: 1 DOSAGE FORM, QD (TAKE ONE TABLET ONCE A DAY)
     Route: 065
     Dates: start: 20240517
  19. FEXOFENADINE [Concomitant]
     Active Substance: FEXOFENADINE HYDROCHLORIDE
     Dosage: 1 DOSAGE FORM, QD (TAKE ONE TABLET ONCE A DAY)
     Route: 065
     Dates: start: 20240517
  20. FEXOFENADINE [Concomitant]
     Active Substance: FEXOFENADINE HYDROCHLORIDE
     Dosage: 1 DOSAGE FORM, QD (TAKE ONE TABLET ONCE A DAY)
     Dates: start: 20240517
  21. HYDROXOCOBALAMIN [Concomitant]
     Active Substance: HYDROXOCOBALAMIN
     Indication: Ill-defined disorder
     Dosage: 1 MILLIGRAM, Q3MONTHS (1MG INTRAMUSCULARLY EVERY THREE MONTHS TO CONTINUE)
     Dates: start: 20240517
  22. HYDROXOCOBALAMIN [Concomitant]
     Active Substance: HYDROXOCOBALAMIN
     Dosage: 1 MILLIGRAM, Q3MONTHS (1MG INTRAMUSCULARLY EVERY THREE MONTHS TO CONTINUE)
     Route: 030
     Dates: start: 20240517
  23. HYDROXOCOBALAMIN [Concomitant]
     Active Substance: HYDROXOCOBALAMIN
     Dosage: 1 MILLIGRAM, Q3MONTHS (1MG INTRAMUSCULARLY EVERY THREE MONTHS TO CONTINUE)
     Route: 030
     Dates: start: 20240517
  24. HYDROXOCOBALAMIN [Concomitant]
     Active Substance: HYDROXOCOBALAMIN
     Dosage: 1 MILLIGRAM, Q3MONTHS (1MG INTRAMUSCULARLY EVERY THREE MONTHS TO CONTINUE)
     Dates: start: 20240517
  25. ALBUTEROL [Concomitant]
     Active Substance: ALBUTEROL
     Indication: Ill-defined disorder
  26. ALBUTEROL [Concomitant]
     Active Substance: ALBUTEROL
     Route: 055
  27. ALBUTEROL [Concomitant]
     Active Substance: ALBUTEROL
     Route: 055
  28. ALBUTEROL [Concomitant]
     Active Substance: ALBUTEROL
  29. Soprobec [Concomitant]
     Indication: Ill-defined disorder
  30. Soprobec [Concomitant]
     Route: 055
  31. Soprobec [Concomitant]
     Route: 055
  32. Soprobec [Concomitant]

REACTIONS (4)
  - Hallucination [Unknown]
  - Vertigo [Unknown]
  - Abdominal discomfort [Unknown]
  - Nausea [Unknown]
